FAERS Safety Report 24723079 (Version 3)
Quarter: 2024Q4

REPORT INFORMATION
  Report Type: Spontaneous
  Country: US (occurrence: US)
  Receive Date: 20241211
  Receipt Date: 20241227
  Transmission Date: 20250115
  Serious: No
  Sender: PFIZER
  Company Number: US-PFIZER INC-PV202400160743

PATIENT
  Age: 75 Year
  Sex: Female

DRUGS (1)
  1. IBRANCE [Suspect]
     Active Substance: PALBOCICLIB
     Indication: Hormone receptor positive HER2 negative breast cancer
     Dosage: TAKE 1 TAB D X 21 DAY, OFF 7 DAYS/BY MOUTH EVERY MORNING WITH FOOD
     Route: 048

REACTIONS (1)
  - Neoplasm progression [Unknown]
